FAERS Safety Report 24702754 (Version 2)
Quarter: 2024Q4

REPORT INFORMATION
  Report Type: Spontaneous
  Country: US (occurrence: US)
  Receive Date: 20241205
  Receipt Date: 20241216
  Transmission Date: 20250115
  Serious: Yes (Death)
  Sender: Unknown Manufacturer
  Company Number: US-MTPC-MTDA2024-0024564

PATIENT
  Age: 53 Year
  Sex: Male

DRUGS (4)
  1. RADICAVA ORS [Suspect]
     Active Substance: EDARAVONE
     Indication: Amyotrophic lateral sclerosis
     Dosage: 105 MILLIGRAM (5 ML), QD, FOR 10 OUT OF 14 DAYS THEN 14 DAYS OFF
     Route: 048
     Dates: start: 202407
  2. RADICAVA ORS [Suspect]
     Active Substance: EDARAVONE
     Indication: Amyotrophic lateral sclerosis
     Dosage: 105 MILLIGRAM (5 ML), QD, FOR 10 OUT OF 14 DAYS THEN 14 DAYS OFF
     Route: 048
     Dates: start: 202407
  3. RADICAVA ORS [Suspect]
     Active Substance: EDARAVONE
     Dosage: MAINTENANCE DOSE
     Route: 048
     Dates: start: 202408
  4. RADICAVA ORS [Suspect]
     Active Substance: EDARAVONE
     Dosage: MAINTENANCE DOSE
     Route: 048
     Dates: start: 202408

REACTIONS (1)
  - Death [Fatal]

NARRATIVE: CASE EVENT DATE: 20241130
